FAERS Safety Report 4550603-9 (Version None)
Quarter: 2004Q4

REPORT INFORMATION
  Report Type: 
  Country: None (occurrence: None)
  Receive Date: 20041227
  Receipt Date: 20040917
  Transmission Date: 20050328
  Serious: No
  Sender: FDA-Public Use
  Company Number: 04P-163-0274040-00

PATIENT
  Age: 74 Year
  Sex: Female
  Weight: 69.4003 kg

DRUGS (14)
  1. HUMIRA [Suspect]
     Indication: RHEUMATOID ARTHRITIS
     Dosage: 40 MG, 1 IN 2 WK, SUBCUTANEOUS
     Route: 058
     Dates: start: 20030101, end: 20040701
  2. PREDNISONE [Concomitant]
  3. HYDROXYCHLOROQUINE PHOSPHATE [Concomitant]
  4. METHOTREDXATE [Concomitant]
  5. BUCINDOLOL HYDROCHLORIDE [Concomitant]
  6. RABEPRAZOLE SODIUM [Concomitant]
  7. ERGOCALCIFEROL [Concomitant]
  8. FOLIC ACID [Concomitant]
  9. TOCOPHEROL CONCENTRATE CAP [Concomitant]
  10. SULFASALAZINE [Concomitant]
  11. ACTINOL [Concomitant]
  12. PHENERGAN [Concomitant]
  13. ALLEGRA-D [Concomitant]
  14. BENICAL [Concomitant]

REACTIONS (1)
  - BRONCHITIS [None]
